FAERS Safety Report 7417277-0 (Version None)
Quarter: 2011Q2

REPORT INFORMATION
  Report Type: 
  Country: None (occurrence: None)
  Receive Date: 20110415
  Receipt Date: 20110408
  Transmission Date: 20111010
  Serious: Yes (Hospitalization)
  Sender: FDA-Public Use
  Company Number: FR-BRISTOL-MYERS SQUIBB COMPANY-15664121

PATIENT
  Age: 86 Year
  Sex: Female

DRUGS (8)
  1. CORGARD [Concomitant]
  2. STILNOX [Suspect]
     Dosage: STILNOX 10MG 1DF:1 TABS
     Route: 048
     Dates: end: 20110228
  3. MIANSERIN [Suspect]
  4. COAPROVEL TABS 300MG/12.5MG [Suspect]
     Dosage: 1DF:1 TABS
     Route: 048
     Dates: end: 20110228
  5. PARIET [Concomitant]
  6. ATARAX [Suspect]
     Dosage: ATARAX 100MG 1DF:1 TABS
     Route: 048
     Dates: end: 20110228
  7. LEXOMIL [Suspect]
     Dosage: LEXOMIL ROCHE STICK TABLET  1FD:2 TABS OF 6MG
     Route: 048
  8. ROCALTROL [Concomitant]

REACTIONS (4)
  - URINARY RETENTION [None]
  - HYPONATRAEMIA [None]
  - CONFUSIONAL STATE [None]
  - FAECALOMA [None]
